FAERS Safety Report 4320952-8 (Version None)
Quarter: 2004Q1

REPORT INFORMATION
  Report Type: 
  Country: None (occurrence: None)
  Receive Date: 20040318
  Receipt Date: 20040302
  Transmission Date: 20041129
  Serious: Yes (Other)
  Sender: FDA-Public Use
  Company Number: 205218

PATIENT
  Age: 44 Year
  Sex: Female
  Weight: 62.1 kg

DRUGS (7)
  1. HERCEPTIN (TRASTUZUMAB) PWDR + SOLVENT, INSUSION SOLN, 440MG [Suspect]
     Indication: BREAST CANCER METASTATIC
     Dosage: INTRAVENOUS
     Route: 042
     Dates: start: 20020417, end: 20031018
  2. DOXIFLURIDINE (DOXIFLURIDINE) [Suspect]
     Dosage: 800 MG, QD, ORAL
     Route: 048
     Dates: start: 20031011, end: 20031025
  3. DOXIFLURIDINE (DOXIFLURIDINE) [Suspect]
     Dosage: 800 MG, QD, ORAL
     Route: 048
     Dates: start: 20031115, end: 20040110
  4. CYCLOPHOSPHAMIDE [Suspect]
     Dosage: 100 MG, QD, ORAL
     Route: 048
     Dates: start: 20031011, end: 20031025
  5. CYCLOPHOSPHAMIDE [Suspect]
     Dosage: 100 MG, QD, ORAL
     Route: 048
     Dates: start: 20031115
  6. MYONAL (EPERISONE) [Concomitant]
  7. LOXONIN (LOXOPROFEN SODIUM) [Concomitant]

REACTIONS (7)
  - CARDIAC FAILURE [None]
  - DYSGEUSIA [None]
  - GAIT DISTURBANCE [None]
  - LEUKOENCEPHALOPATHY [None]
  - MONOPARESIS [None]
  - TREMOR [None]
  - WHITE BLOOD CELL COUNT DECREASED [None]
